FAERS Safety Report 15966073 (Version 1)
Quarter: 2019Q1

REPORT INFORMATION
  Report Type: Spontaneous
  Country: US (occurrence: US)
  Receive Date: 20190214
  Receipt Date: 20190214
  Transmission Date: 20190418
  Serious: Yes (Life-Threatening, Hospitalization, Other)
  Sender: FDA-Public Use
  Company Number: None

PATIENT
  Age: 35 Year
  Sex: Male
  Weight: 90 kg

DRUGS (1)
  1. LAMICTAL [Suspect]
     Active Substance: LAMOTRIGINE
     Indication: AFFECTIVE DISORDER
     Dosage: ?          QUANTITY:1 CAPSULE(S);?
     Route: 048

REACTIONS (13)
  - Seizure [None]
  - Arthralgia [None]
  - Rash [None]
  - Fatigue [None]
  - Myalgia [None]
  - Amnesia [None]
  - Anxiety [None]
  - Headache [None]
  - Abdominal pain upper [None]
  - Pruritus [None]
  - Asthenia [None]
  - Gastrooesophageal reflux disease [None]
  - Dyspnoea [None]

NARRATIVE: CASE EVENT DATE: 20170115
